FAERS Safety Report 8833362 (Version 1)
Quarter: 2012Q4

REPORT INFORMATION
  Report Type: Report from Study
  Country: NL (occurrence: NL)
  Receive Date: 20121010
  Receipt Date: 20121010
  Transmission Date: 20130627
  Serious: Yes (Hospitalization)
  Sender: FDA-Public Use
  Company Number: NL-B.I. PHARMACEUTICALS,INC./RIDGEFIELD-1998-NL-07114

PATIENT
  Age: 52 Year
  Sex: Male

DRUGS (5)
  1. PERSANTIN RETARD 150 [Suspect]
     Indication: PROPHYLAXIS
     Dosage: 300 mg
     Route: 048
     Dates: start: 19980607, end: 19980609
  2. ASCAL [Suspect]
     Indication: PROPHYLAXIS
     Dosage: 38 mg
     Dates: start: 19980607, end: 19980609
  3. FOLIUMZUUR [Concomitant]
     Dosage: 5 mg
     Route: 048
     Dates: start: 19980417
  4. OXIS [Concomitant]
     Dosage: 24 mcg
     Route: 055
     Dates: start: 19980109
  5. VENTOLIN [Concomitant]
     Dosage: 200 mcg
     Route: 055

REACTIONS (3)
  - Headache [Not Recovered/Not Resolved]
  - Dyspnoea [Not Recovered/Not Resolved]
  - Bronchospasm [None]
